FAERS Safety Report 9089880 (Version 3)
Quarter: 2015Q2

REPORT INFORMATION
  Report Type: Spontaneous
  Country: CA (occurrence: CA)
  Receive Date: 20130131
  Receipt Date: 20150515
  Transmission Date: 20150821
  Serious: Yes (Hospitalization, Other)
  Sender: FDA-Public Use
  Company Number: CA-MERCK-1301CAN014652

PATIENT
  Age: 45 Year
  Sex: Male

DRUGS (2)
  1. INTRON A [Suspect]
     Active Substance: INTERFERON ALFA-2B
     Dosage: 3 MIU, THREE TIMES WEEKLY
     Route: 058
     Dates: start: 201408
  2. INTRON A [Suspect]
     Active Substance: INTERFERON ALFA-2B
     Indication: MYCOSIS FUNGOIDES
     Dosage: 1.5 MILLION IU, TIW
     Route: 058
     Dates: end: 201212

REACTIONS (4)
  - Peritonitis [Recovered/Resolved]
  - Nausea [Unknown]
  - Mycosis fungoides recurrent [Not Recovered/Not Resolved]
  - Intestinal perforation [Recovered/Resolved]

NARRATIVE: CASE EVENT DATE: 2014
